FAERS Safety Report 20872651 (Version 1)
Quarter: 2022Q2

REPORT INFORMATION
  Report Type: Spontaneous
  Country: US (occurrence: US)
  Receive Date: 20220525
  Receipt Date: 20220525
  Transmission Date: 20220721
  Serious: Yes (Other)
  Sender: FDA-Public Use
  Company Number: US-UCBSA-2022028457

PATIENT
  Sex: Female

DRUGS (1)
  1. VIMPAT [Suspect]
     Active Substance: LACOSAMIDE
     Indication: Seizure
     Dosage: UNK
     Dates: start: 202110

REACTIONS (10)
  - Depression [Unknown]
  - Anxiety [Unknown]
  - Nausea [Unknown]
  - Panic attack [Unknown]
  - Agitation [Unknown]
  - Irritability [Unknown]
  - Anger [Unknown]
  - Restlessness [Unknown]
  - Disturbance in attention [Unknown]
  - Insomnia [Unknown]
